FAERS Safety Report 9706783 (Version 1)
Quarter: 2013Q4

REPORT INFORMATION
  Report Type: Spontaneous
  Country: US (occurrence: None)
  Receive Date: 20131122
  Receipt Date: 20131122
  Transmission Date: 20140711
  Serious: No
  Sender: FDA-Public Use
  Company Number: None

PATIENT
  Age: 60 None
  Sex: Male

DRUGS (1)
  1. BACTRIM DS [Suspect]
     Dates: start: 20120823, end: 20120905

REACTIONS (5)
  - Drug-induced liver injury [None]
  - Chills [None]
  - Pruritus [None]
  - Hepatomegaly [None]
  - Excoriation [None]
